FAERS Safety Report 16806261 (Version 6)
Quarter: 2020Q2

REPORT INFORMATION
  Report Type: Spontaneous
  Country: US (occurrence: US)
  Receive Date: 20190913
  Receipt Date: 20200417
  Transmission Date: 20200713
  Serious: Yes (Death, Hospitalization)
  Sender: FDA-Public Use
  Company Number: US-ACTELION-A-NJ2019-195398

PATIENT
  Age: 72 Year
  Sex: Male
  Weight: 60.32 kg

DRUGS (7)
  1. COUMADIN [Concomitant]
     Active Substance: WARFARIN SODIUM
  2. ADEMPAS [Concomitant]
     Active Substance: RIOCIGUAT
  3. UPTRAVI [Suspect]
     Active Substance: SELEXIPAG
     Dosage: 1600 MCG, BID
     Route: 048
     Dates: start: 201911
  4. UPTRAVI [Suspect]
     Active Substance: SELEXIPAG
     Indication: PULMONARY HYPERTENSION
     Dosage: 1400 MCG, BID
     Route: 048
  5. UPTRAVI [Suspect]
     Active Substance: SELEXIPAG
     Dosage: 400 MCG, BID
     Route: 048
     Dates: start: 20190927
  6. UPTRAVI [Suspect]
     Active Substance: SELEXIPAG
     Dosage: 200 MCG, BID
     Route: 048
     Dates: start: 20190830, end: 20190831
  7. UPTRAVI [Suspect]
     Active Substance: SELEXIPAG
     Dosage: 1400 MCG
     Route: 048
     Dates: start: 20191111

REACTIONS (14)
  - Hypertension [Fatal]
  - Haematemesis [Unknown]
  - Dyspnoea [Recovering/Resolving]
  - Elective surgery [Unknown]
  - Organ failure [Fatal]
  - Abdominal distension [Unknown]
  - Paracentesis [Unknown]
  - Vomiting projectile [Unknown]
  - Headache [Recovering/Resolving]
  - Rhinorrhoea [Unknown]
  - Nausea [Unknown]
  - Productive cough [Unknown]
  - Arthralgia [Unknown]
  - Feeling abnormal [Recovering/Resolving]

NARRATIVE: CASE EVENT DATE: 20190831
